FAERS Safety Report 14056132 (Version 2)
Quarter: 2018Q1

REPORT INFORMATION
  Report Type: Report from Study
  Country: BR (occurrence: BR)
  Receive Date: 20171006
  Receipt Date: 20180103
  Transmission Date: 20180508
  Serious: Yes (Hospitalization, Other)
  Sender: FDA-Public Use
  Company Number: PHHY2017BR126041

PATIENT
  Sex: Female

DRUGS (11)
  1. EXELON PATCH [Suspect]
     Active Substance: RIVASTIGMINE
     Indication: PRODUCT USED FOR UNKNOWN INDICATION
     Dosage: 4.6 MG, QD (PATCH 5 (CM2))
     Route: 065
  2. GALANTAMINE. [Concomitant]
     Active Substance: GALANTAMINE
     Indication: PRODUCT USED FOR UNKNOWN INDICATION
     Dosage: 8 MG, UNK
     Route: 065
  3. DIOVAN [Suspect]
     Active Substance: VALSARTAN
     Indication: PRODUCT USED FOR UNKNOWN INDICATION
     Dosage: 320 MG, UNK
     Route: 065
  4. GALANTAMINE. [Concomitant]
     Active Substance: GALANTAMINE
     Dosage: 16 MG, UNK
     Route: 065
  5. DONEPEZIL. [Concomitant]
     Active Substance: DONEPEZIL
     Indication: PRODUCT USED FOR UNKNOWN INDICATION
     Dosage: 5 MG, UNK
     Route: 065
  6. DONEPEZIL. [Concomitant]
     Active Substance: DONEPEZIL
     Dosage: 10 MG, UNK
     Route: 065
  7. DIOVAN HCT [Suspect]
     Active Substance: HYDROCHLOROTHIAZIDE\VALSARTAN
     Indication: HYPERTENSION
     Dosage: 1 DF (HYDROCHLOROTHIAZIDE 25 MG/ VALSARTAN 160 MG), QD (10 YEARS AGO)
     Route: 048
  8. SELOZOK [Concomitant]
     Active Substance: METOPROLOL SUCCINATE
     Indication: HYPERTENSION
     Dosage: 1 DF, QD
     Route: 048
     Dates: start: 20170612
  9. ASA [Concomitant]
     Active Substance: ASPIRIN
     Indication: PRODUCT USED FOR UNKNOWN INDICATION
     Dosage: 1 DF, QD
     Route: 048
  10. CLONAZEPAM. [Concomitant]
     Active Substance: CLONAZEPAM
     Indication: PRODUCT USED FOR UNKNOWN INDICATION
     Route: 065
  11. DIOVAN [Suspect]
     Active Substance: VALSARTAN
     Dosage: 160 MG, UNK
     Route: 065

REACTIONS (25)
  - Fatigue [Unknown]
  - Blood pressure decreased [Unknown]
  - Vomiting [Unknown]
  - Dizziness [Unknown]
  - Weight decreased [Unknown]
  - Insomnia [Not Recovered/Not Resolved]
  - Cerebrovascular accident [Unknown]
  - Eating disorder [Unknown]
  - Dysarthria [Unknown]
  - Labyrinthitis [Recovering/Resolving]
  - Nausea [Unknown]
  - Sleep disorder [Unknown]
  - Ischaemia [Unknown]
  - Diabetes mellitus [Recovering/Resolving]
  - Blood pressure increased [Unknown]
  - Agitation [Unknown]
  - Dementia Alzheimer^s type [Not Recovered/Not Resolved]
  - Hepatic steatosis [Unknown]
  - Decreased appetite [Unknown]
  - Feeling abnormal [Unknown]
  - Deafness [Not Recovered/Not Resolved]
  - Drug intolerance [Unknown]
  - Malaise [Unknown]
  - Memory impairment [Not Recovered/Not Resolved]
  - Restlessness [Unknown]
